FAERS Safety Report 5815736-5 (Version None)
Quarter: 2008Q3

REPORT INFORMATION
  Report Type: 
  Country: None (occurrence: None)
  Receive Date: 20080721
  Receipt Date: 20070622
  Transmission Date: 20090109
  Serious: No
  Sender: FDA-Public Use
  Company Number: US-KINGPHARMUSA00001-K200700796

PATIENT

DRUGS (1)
  1. BICILLIN L-A [Suspect]
     Dosage: 2.4 ^MILLIUNITS^ TWICE
     Dates: start: 20070621, end: 20070622

REACTIONS (2)
  - INCORRECT DOSE ADMINISTERED [None]
  - NO ADVERSE EVENT [None]
